FAERS Safety Report 4816971-5 (Version None)
Quarter: 2005Q4

REPORT INFORMATION
  Report Type: 
  Country: None (occurrence: None)
  Receive Date: 20051101
  Receipt Date: 20051020
  Transmission Date: 20060501
  Serious: Yes (Hospitalization)
  Sender: FDA-Public Use
  Company Number: 2005UW15898

PATIENT
  Age: 40 Year
  Sex: Female

DRUGS (3)
  1. SEROQUEL [Suspect]
     Route: 048
  2. DEPAKOTE [Concomitant]
  3. XANAX [Concomitant]

REACTIONS (3)
  - ALCOHOL USE [None]
  - DRUG ADMINISTRATION ERROR [None]
  - PSYCHOTIC DISORDER [None]
